FAERS Safety Report 5596754-1 (Version None)
Quarter: 2007Q4

REPORT INFORMATION
  Report Type: 
  Country: None (occurrence: None)
  Receive Date: 20071220
  Receipt Date: 20071026
  Transmission Date: 20080405
  Serious: Yes (Hospitalization, Other)
  Sender: FDA-Public Use
  Company Number: US-JNJFOC-20071007505

PATIENT
  Age: 36 Year
  Sex: Female
  Weight: 52.1637 kg

DRUGS (2)
  1. ORTHO TRI-CYCLEN [Suspect]
     Indication: CONTRACEPTION
     Dosage: 1 DOSE (S), 1 IN 1 DAY
     Dates: start: 20050101, end: 20060101
  2. ORTHO TRI-CYCLEN [Suspect]
     Indication: CONTRACEPTION
     Dosage: 1 DOSE (S), 1 IN 1 DAY
     Dates: start: 20070201, end: 20071025

REACTIONS (3)
  - DRUG EXPOSURE DURING PREGNANCY [None]
  - PRECANCEROUS CELLS PRESENT [None]
  - PREGNANCY ON ORAL CONTRACEPTIVE [None]
